FAERS Safety Report 8038816-5 (Version None)
Quarter: 2012Q1

REPORT INFORMATION
  Report Type: 
  Country: None (occurrence: None)
  Receive Date: 20120111
  Receipt Date: 20111206
  Transmission Date: 20120608
  Serious: No
  Sender: FDA-Public Use
  Company Number: US-AMGEN-USASP2011056621

PATIENT
  Age: 33 Year
  Sex: Female
  Weight: 97.959 kg

DRUGS (3)
  1. ENBREL [Suspect]
     Indication: RHEUMATOID ARTHRITIS
     Dosage: 50 MG, QWK
     Dates: start: 20111010
  2. PREDNISONE TAB [Concomitant]
     Indication: RHEUMATOID ARTHRITIS
     Dosage: 7 MG, QD
     Route: 048
     Dates: start: 20110824
  3. TREXALL [Concomitant]
     Indication: RHEUMATOID ARTHRITIS
     Dosage: 15 MG, QWK
     Route: 048
     Dates: start: 20110824

REACTIONS (6)
  - DRUG EFFECT DECREASED [None]
  - NASAL CONGESTION [None]
  - PARANASAL SINUS HYPERSECRETION [None]
  - MUSCULOSKELETAL STIFFNESS [None]
  - RHEUMATOID ARTHRITIS [None]
  - NASOPHARYNGITIS [None]
